FAERS Safety Report 6831416-1 (Version None)
Quarter: 2010Q3

REPORT INFORMATION
  Report Type: 
  Country: None (occurrence: None)
  Receive Date: 20100712
  Receipt Date: 20100701
  Transmission Date: 20110219
  Serious: Yes (Hospitalization)
  Sender: FDA-Public Use
  Company Number: IT-ABBOTT-10P-083-0643658-00

PATIENT
  Sex: Male

DRUGS (1)
  1. VECLAM SUSPENSION [Suspect]
     Indication: OTITIS MEDIA ACUTE
     Route: 048
     Dates: start: 20100419, end: 20100422

REACTIONS (3)
  - OEDEMA PERIPHERAL [None]
  - PERIORBITAL OEDEMA [None]
  - URTICARIA [None]
